FAERS Safety Report 4301355-9 (Version None)
Quarter: 2004Q1

REPORT INFORMATION
  Report Type: 
  Country: None (occurrence: None)
  Receive Date: 20040223
  Receipt Date: 20030512
  Transmission Date: 20041129
  Serious: Yes (Other)
  Sender: FDA-Public Use
  Company Number: US-GLAXOSMITHKLINE-A0408069A

PATIENT
  Age: 68 Year
  Sex: Male

DRUGS (9)
  1. NAVELBINE [Suspect]
     Indication: NON-SMALL CELL LUNG CANCER
     Dosage: 55MG PER DAY
     Route: 042
     Dates: start: 20030109, end: 20030109
  2. GEMCITABINE [Concomitant]
     Indication: NON-SMALL CELL LUNG CANCER
     Route: 042
  3. ALBUTEROL [Concomitant]
     Route: 055
  4. IPRATROPIUM BROMIDE [Concomitant]
     Route: 055
  5. ASPIRIN [Concomitant]
     Route: 048
  6. IBUPROFEN [Concomitant]
     Route: 048
  7. COMPAZINE [Concomitant]
  8. FERROUS SULFATE TAB [Concomitant]
  9. ZOFRAN [Concomitant]

REACTIONS (5)
  - ANAPHYLACTIC REACTION [None]
  - CHEST DISCOMFORT [None]
  - FEELING ABNORMAL [None]
  - HYPERHIDROSIS [None]
  - THROAT TIGHTNESS [None]
